FAERS Safety Report 8052519-2 (Version None)
Quarter: 2012Q1

REPORT INFORMATION
  Report Type: 
  Country: None (occurrence: None)
  Receive Date: 20120118
  Receipt Date: 20120109
  Transmission Date: 20120608
  Serious: Yes (Hospitalization)
  Sender: FDA-Public Use
  Company Number: US-EISAI INC-E7389-01851-CLI-US

PATIENT
  Sex: Female
  Weight: 66 kg

DRUGS (9)
  1. ONDANSETRON [Concomitant]
     Indication: NAUSEA
     Dates: start: 20110915
  2. CLARITIN [Concomitant]
     Indication: SINUS CONGESTION
     Dates: start: 20111027, end: 20111213
  3. MULTI-VITAMIN [Concomitant]
     Dates: start: 20010101
  4. REGLAN [Concomitant]
     Indication: CONSTIPATION
     Dates: start: 20110320
  5. EPIRUBICIN HYDROCHLORIDE [Suspect]
     Indication: BREAST CANCER
     Route: 041
     Dates: start: 20110915, end: 20111205
  6. BENZOCAINE [Concomitant]
     Dates: start: 20111027
  7. MAXALT [Concomitant]
     Indication: HEADACHE
     Dates: start: 20110101
  8. CALCIUM [Concomitant]
     Dates: start: 20010101
  9. CAPECITABINE [Suspect]
     Indication: BREAST CANCER
     Route: 048
     Dates: start: 20110915, end: 20111208

REACTIONS (2)
  - PULMONARY EMBOLISM [None]
  - PNEUMONIA ASPIRATION [None]
